FAERS Safety Report 24826727 (Version 1)
Quarter: 2025Q1

REPORT INFORMATION
  Report Type: Spontaneous
  Country: US (occurrence: US)
  Receive Date: 20250109
  Receipt Date: 20250109
  Transmission Date: 20250408
  Serious: No
  Sender: COOPERSURGICAL
  Company Number: US-COOPERSURGICAL, INC.-US-2024CPS000725

PATIENT
  Age: 30 Year
  Sex: Female
  Weight: 105.22 kg

DRUGS (3)
  1. PARAGARD T 380A [Suspect]
     Active Substance: COPPER
     Indication: Contraception
     Route: 015
     Dates: start: 20220816, end: 20240305
  2. FLONASE [Concomitant]
     Active Substance: FLUTICASONE PROPIONATE
     Indication: Product used for unknown indication
     Route: 065
  3. FAMOTIDINE [Concomitant]
     Active Substance: FAMOTIDINE
     Indication: Product used for unknown indication
     Route: 065

REACTIONS (8)
  - Ureaplasmal vulvovaginitis [Unknown]
  - Vaginal odour [Unknown]
  - Bacterial vaginosis [Unknown]
  - Pelvic pain [Unknown]
  - Dyspareunia [Unknown]
  - Vaginal discharge [Unknown]
  - Device dislocation [Recovered/Resolved]
  - Mycoplasma infection [Unknown]

NARRATIVE: CASE EVENT DATE: 20230706
